FAERS Safety Report 22535564 (Version 1)
Quarter: 2023Q2

REPORT INFORMATION
  Report Type: Spontaneous
  Country: DE (occurrence: DE)
  Receive Date: 20230608
  Receipt Date: 20230608
  Transmission Date: 20230721
  Serious: Yes (Hospitalization)
  Sender: FDA-Public Use
  Company Number: DE-MYLANLABS-2023M1060195

PATIENT
  Sex: Male

DRUGS (14)
  1. DOXORUBICIN [Suspect]
     Active Substance: DOXORUBICIN
     Indication: T-cell lymphoma
     Dosage: UNK, CYCLE (FIRST LINE THERAPY AS A PART OF R-CHOEP REGIMEN FOR 4 CYCLES)
     Route: 065
  2. PREDNISOLONE [Suspect]
     Active Substance: PREDNISOLONE
     Indication: T-cell lymphoma
     Dosage: UNK (FIRST LINE THERAPY AS A PART OF R-CHOEP REGIMEN FOR 4 CYCLES)
     Route: 065
  3. CYTARABINE [Suspect]
     Active Substance: CYTARABINE
     Indication: T-cell lymphoma
     Dosage: UNK, CYCLE (SECOND LINE THERAPY AS A PART OF DHAP REGIMEN FOR 1 CYCLE- HIGH DOSE)
     Route: 065
  4. CISPLATIN [Suspect]
     Active Substance: CISPLATIN
     Indication: T-cell lymphoma
     Dosage: UNK, CYCLE (SECOND LINE THERAPY AS A PART OF DHAP REGIMEN FOR 1 CYCLE)
     Route: 065
  5. METHOTREXATE [Suspect]
     Active Substance: METHOTREXATE
     Indication: T-cell lymphoma
     Dosage: UNK, THIRD LINE THERAPY AS A PART OF SMILE REGIMEN
     Route: 065
  6. CYCLOPHOSPHAMIDE [Suspect]
     Active Substance: CYCLOPHOSPHAMIDE
     Indication: T-cell lymphoma
     Dosage: UNK, CYCLE (FIRST LINE THERAPY AS A PART OF R-CHOEP REGIMEN FOR 4 CYCLES)
     Route: 065
  7. RITUXIMAB [Suspect]
     Active Substance: RITUXIMAB
     Indication: T-cell lymphoma
     Dosage: UNK, CYCLE (FIRST LINE THERAPY AS A PART OF R-CHOEP REGIMEN FOR 4 CYCLES)
     Route: 065
  8. VINCRISTINE [Suspect]
     Active Substance: VINCRISTINE
     Indication: T-cell lymphoma
     Dosage: UNK, CYCLE (FIRST LINE THERAPY AS A PART OF R-CHOEP REGIMEN FOR 4 CYCLES)
     Route: 065
  9. ETOPOSIDE [Suspect]
     Active Substance: ETOPOSIDE
     Indication: T-cell lymphoma
     Dosage: UNK, CYCLE (FIRST LINE THERAPY AS A PART OF R-CHOEP REGIMEN FOR 4 CYCLES)
     Route: 065
  10. ETOPOSIDE [Suspect]
     Active Substance: ETOPOSIDE
     Dosage: UNK, THIRD LINE THERAPY AS A PART OF SMILE REGIMEN
     Route: 065
  11. DEXAMETHASONE [Suspect]
     Active Substance: DEXAMETHASONE
     Indication: T-cell lymphoma
     Dosage: UNK, CYCLE (SECOND LINE THERAPY AS A PART OF DHAP REGIMEN FOR 1 CYCLE)
     Route: 065
  12. DEXAMETHASONE [Suspect]
     Active Substance: DEXAMETHASONE
     Dosage: UNK (THIRD LINE THERAPY AS A PART OF SMILE REGIMEN)
     Route: 065
  13. IFOSFAMIDE [Suspect]
     Active Substance: IFOSFAMIDE
     Indication: T-cell lymphoma
     Dosage: UNK (THIRD LINE THERAPY AS A PART OF SMILE REGIMEN)
     Route: 065
  14. ASPARAGINASE [Suspect]
     Active Substance: ASPARAGINASE
     Indication: T-cell lymphoma
     Dosage: UNK (THIRD LINE THERAPY AS A PART OF SMILE REGIMEN)
     Route: 065

REACTIONS (2)
  - Drug ineffective [Unknown]
  - Disease progression [Unknown]
